FAERS Safety Report 5367500-1 (Version None)
Quarter: 2007Q2

REPORT INFORMATION
  Report Type: 
  Country: None (occurrence: None)
  Receive Date: 20070622
  Receipt Date: 20060925
  Transmission Date: 20071010
  Serious: No
  Sender: FDA-Public Use
  Company Number: US-ASTRAZENECA-2006UW18687

PATIENT
  Age: 78 Year
  Sex: Female

DRUGS (4)
  1. PULMICORT [Suspect]
     Indication: LUNG DISORDER
     Route: 055
  2. LITTLE ASA [Concomitant]
  3. DIAMOX [Concomitant]
  4. SYNTHROID [Concomitant]

REACTIONS (2)
  - ASTHENIA [None]
  - NERVOUSNESS [None]
